FAERS Safety Report 9369956 (Version 1)
Quarter: 2013Q2

REPORT INFORMATION
  Report Type: Spontaneous
  Country: ZA (occurrence: ZA)
  Receive Date: 20130626
  Receipt Date: 20130626
  Transmission Date: 20140414
  Serious: Yes (Disabling)
  Sender: FDA-Public Use
  Company Number: ZA-PFIZER INC-2013186596

PATIENT
  Age: 73 Year
  Sex: Female

DRUGS (4)
  1. ATORVASTATIN UNICORN [Suspect]
     Indication: HYPERCHOLESTEROLAEMIA
     Dosage: 10 MG, 1X/DAY
     Route: 048
     Dates: start: 20121011
  2. FORTZAAR [Concomitant]
     Dosage: 100 MG, 1X/DAY
     Route: 048
  3. SLOW-K [Concomitant]
     Dosage: 1 DF, 1X/DAY
     Route: 048
  4. RESERPINE [Concomitant]
     Dosage: 0.25 MG, 1X/DAY
     Route: 048

REACTIONS (3)
  - Myalgia [Recovered/Resolved]
  - Movement disorder [Recovered/Resolved]
  - Activities of daily living impaired [Recovered/Resolved]
